FAERS Safety Report 8472444-2 (Version None)
Quarter: 2012Q2

REPORT INFORMATION
  Report Type: 
  Country: None (occurrence: None)
  Receive Date: 20120627
  Receipt Date: 20111110
  Transmission Date: 20120825
  Serious: Yes (Other)
  Sender: FDA-Public Use
  Company Number: US-AMGEN-USASP2011059159

PATIENT
  Age: 62 Year
  Sex: Male

DRUGS (5)
  1. PROCRIT [Suspect]
     Indication: PRODUCT USED FOR UNKNOWN INDICATION
     Dosage: UNK UNK, QWK
     Route: 058
  2. RIBAVIRIN [Concomitant]
     Dosage: UNK
     Route: 048
     Dates: start: 20110731
  3. PEGASYS [Concomitant]
     Indication: HEPATITIS C
     Dosage: UNK
     Route: 058
     Dates: start: 20110729
  4. TELAPREVIR [Suspect]
     Indication: HEPATITIS C
     Dosage: UNK
     Route: 048
     Dates: start: 20110730
  5. RIBAVIRIN [Concomitant]
     Indication: HEPATITIS C
     Dosage: UNK UNK, BID
     Route: 048
     Dates: start: 20110730

REACTIONS (5)
  - FATIGUE [None]
  - RASH [None]
  - PAIN IN EXTREMITY [None]
  - BLISTER [None]
  - ANAEMIA [None]
